FAERS Safety Report 4541693-8 (Version None)
Quarter: 2004Q4

REPORT INFORMATION
  Report Type: 
  Country: None (occurrence: None)
  Receive Date: 20041230
  Receipt Date: 20041221
  Transmission Date: 20050328
  Serious: Yes (Other)
  Sender: FDA-Public Use
  Company Number: US-JNJFOC-20040900786

PATIENT
  Sex: Female
  Weight: 63.4 kg

DRUGS (1)
  1. REMICADE [Suspect]
     Indication: CROHN'S DISEASE
     Route: 042

REACTIONS (7)
  - CROHN'S DISEASE [None]
  - HEPATIC CIRRHOSIS [None]
  - LIVER TRANSPLANT [None]
  - NEUTROPENIA [None]
  - PORTAL HYPERTENSION [None]
  - THROMBOCYTOPENIA [None]
  - WHITE BLOOD CELL COUNT DECREASED [None]
